FAERS Safety Report 4712824-1 (Version None)
Quarter: 2005Q3

REPORT INFORMATION
  Report Type: 
  Country: None (occurrence: None)
  Receive Date: 20050711
  Receipt Date: 20050711
  Transmission Date: 20060218
  Serious: No
  Sender: FDA-Public Use
  Company Number: None

PATIENT

DRUGS (1)
  1. HEPARIN [Suspect]
     Dosage: TITRATED IV
     Route: 042
     Dates: start: 20050605, end: 20050620

REACTIONS (1)
  - HEPARIN-INDUCED THROMBOCYTOPENIA [None]
